FAERS Safety Report 6283644-4 (Version None)
Quarter: 2009Q3

REPORT INFORMATION
  Report Type: 
  Country: None (occurrence: None)
  Receive Date: 20090724
  Receipt Date: 20090722
  Transmission Date: 20100115
  Serious: Yes (Hospitalization, Other)
  Sender: FDA-Public Use
  Company Number: PHHO2007DE05809

PATIENT
  Age: 68 Year
  Sex: Female
  Weight: 69 kg

DRUGS (2)
  1. ZOLEDRONIC ACID [Suspect]
     Indication: BREAST CANCER
     Dosage: 4MG EVERY 3 MONTHS
     Route: 042
     Dates: start: 20070213
  2. TRASTUZUMAB [Suspect]
     Indication: BREAST CANCER
     Dosage: 520UG
     Route: 042
     Dates: start: 20070207, end: 20070228

REACTIONS (3)
  - BLOOD PRESSURE ABNORMAL [None]
  - CARDIAC FAILURE [None]
  - EJECTION FRACTION DECREASED [None]
